FAERS Safety Report 7217869-8 (Version None)
Quarter: 2011Q1

REPORT INFORMATION
  Report Type: 
  Country: None (occurrence: None)
  Receive Date: 20110110
  Receipt Date: 20110106
  Transmission Date: 20110831
  Serious: Yes (Hospitalization)
  Sender: FDA-Public Use
  Company Number: DE-ABBOTT-11P-062-0695739-00

PATIENT
  Sex: Female

DRUGS (3)
  1. CARVEDILOL [Concomitant]
     Indication: HYPERTENSION
     Dosage: UNK.
  2. LISINOPRIL [Concomitant]
     Indication: HYPERTENSION
     Dosage: UNK.
  3. HUMIRA [Suspect]
     Indication: CROHN'S DISEASE
     Route: 058
     Dates: start: 20100624, end: 20101214

REACTIONS (6)
  - DIARRHOEA [None]
  - DRUG INEFFECTIVE [None]
  - NAUSEA [None]
  - CROHN'S DISEASE [None]
  - WEIGHT DECREASED [None]
  - ABDOMINAL PAIN [None]
